FAERS Safety Report 9631861 (Version 1)
Quarter: 2013Q4

REPORT INFORMATION
  Report Type: Spontaneous
  Country: US (occurrence: US)
  Receive Date: 20131018
  Receipt Date: 20131018
  Transmission Date: 20140711
  Serious: Yes (Other)
  Sender: FDA-Public Use
  Company Number: US-ASTELLAS-2013US000793

PATIENT
  Age: 66 Year
  Sex: Female

DRUGS (1)
  1. MYCAMINE [Suspect]
     Indication: PRODUCT USED FOR UNKNOWN INDICATION
     Dosage: 100 MG, OVER 60 MINUTES
     Route: 042

REACTIONS (1)
  - Hypertension [Unknown]
